FAERS Safety Report 23497371 (Version 2)
Quarter: 2024Q2

REPORT INFORMATION
  Report Type: Spontaneous
  Country: US (occurrence: US)
  Receive Date: 20240208
  Receipt Date: 20240516
  Transmission Date: 20240716
  Serious: No
  Sender: FDA-Public Use
  Company Number: US-SA-SAC20240202000354

PATIENT
  Age: 59 Year
  Sex: Female

DRUGS (1)
  1. DUPIXENT [Suspect]
     Active Substance: DUPILUMAB
     Indication: Neurodermatitis
     Dosage: 300 MG, QOW
     Route: 058

REACTIONS (5)
  - Dry skin [Recovering/Resolving]
  - Injection site swelling [Recovered/Resolved]
  - Injection site pain [Unknown]
  - Pruritus [Unknown]
  - Therapeutic response shortened [Unknown]
